FAERS Safety Report 12161489 (Version 8)
Quarter: 2023Q4

REPORT INFORMATION
  Report Type: Other
  Country: DE (occurrence: DE)
  Receive Date: 20160309
  Receipt Date: 20231012
  Transmission Date: 20240110
  Serious: Yes (Hospitalization)
  Sender: FDA-Public Use
  Company Number: DE-ROCHE-1719994

PATIENT
  Age: 75 Year
  Sex: Female
  Weight: 62 kg

DRUGS (23)
  1. CAPECITABINE [Suspect]
     Active Substance: CAPECITABINE
     Indication: Breast cancer
     Route: 048
     Dates: start: 20150507, end: 20150520
  2. CAPECITABINE [Suspect]
     Active Substance: CAPECITABINE
     Route: 048
     Dates: start: 20150528, end: 20150610
  3. CAPECITABINE [Suspect]
     Active Substance: CAPECITABINE
     Route: 048
     Dates: start: 20150703, end: 20150703
  4. CAPECITABINE [Suspect]
     Active Substance: CAPECITABINE
     Route: 048
     Dates: start: 20150507, end: 20150520
  5. BEVACIZUMAB [Suspect]
     Active Substance: BEVACIZUMAB
     Indication: Breast cancer
     Route: 042
     Dates: start: 20140820
  6. BEVACIZUMAB [Suspect]
     Active Substance: BEVACIZUMAB
     Dosage: 885-900 MG
     Route: 042
     Dates: start: 20150527
  7. BEVACIZUMAB [Suspect]
     Active Substance: BEVACIZUMAB
     Route: 042
     Dates: start: 20150708
  8. BEVACIZUMAB [Suspect]
     Active Substance: BEVACIZUMAB
     Route: 042
     Dates: start: 20140820
  9. MCP [Concomitant]
     Active Substance: METOCLOPRAMIDE HYDROCHLORIDE
     Indication: Nausea
     Dosage: DAILY DOSE: 30 MG MILLIGRAM(S) EVERY DAY
     Route: 048
     Dates: start: 20140811, end: 20150617
  10. FEMARA [Concomitant]
     Active Substance: LETROZOLE
     Indication: Prophylaxis
     Route: 048
     Dates: start: 20141222
  11. PANTOZOL [Concomitant]
     Active Substance: PANTOPRAZOLE SODIUM
     Indication: Nausea
     Route: 048
     Dates: start: 20140811
  12. DIMETHINDENE [Concomitant]
     Active Substance: DIMETHINDENE
     Indication: Prophylaxis
     Route: 042
     Dates: start: 20140820
  13. BISOPROLOL [Concomitant]
     Active Substance: BISOPROLOL\BISOPROLOL FUMARATE
     Indication: Hypertension
     Route: 048
     Dates: start: 2009
  14. LYRICA [Concomitant]
     Active Substance: PREGABALIN
     Indication: Tumour pain
     Route: 048
     Dates: start: 20130521
  15. DEXAMETHASONE [Concomitant]
     Active Substance: DEXAMETHASONE
     Indication: Prophylaxis
     Route: 042
     Dates: start: 20140820
  16. HYDROMORPHONE HYDROCHLORIDE [Concomitant]
     Active Substance: HYDROMORPHONE HYDROCHLORIDE
     Indication: Tumour pain
     Route: 048
     Dates: start: 20130521, end: 20140919
  17. HYDROMORPHONE HYDROCHLORIDE [Concomitant]
     Active Substance: HYDROMORPHONE HYDROCHLORIDE
     Route: 048
     Dates: start: 20140917, end: 20140930
  18. HYDROMORPHONE HYDROCHLORIDE [Concomitant]
     Active Substance: HYDROMORPHONE HYDROCHLORIDE
     Route: 048
     Dates: start: 20141001
  19. HYDROMORPHONE HYDROCHLORIDE [Concomitant]
     Active Substance: HYDROMORPHONE HYDROCHLORIDE
     Route: 048
     Dates: start: 20140820
  20. PACLITAXEL [Concomitant]
     Active Substance: PACLITAXEL
     Indication: Breast cancer
     Route: 042
     Dates: start: 20140820, end: 20141015
  21. PACLITAXEL [Concomitant]
     Active Substance: PACLITAXEL
     Route: 042
     Dates: start: 20141022, end: 20141112
  22. RANITIDINE HYDROCHLORIDE [Concomitant]
     Active Substance: RANITIDINE HYDROCHLORIDE
     Indication: Prophylaxis
     Route: 042
     Dates: start: 20140820
  23. METAMIZOL [Concomitant]
     Active Substance: METAMIZOLE SODIUM

REACTIONS (2)
  - Cholecystitis [Recovered/Resolved with Sequelae]
  - Nausea [Recovered/Resolved]

NARRATIVE: CASE EVENT DATE: 20150616
